FAERS Safety Report 13817762 (Version 2)
Quarter: 2017Q4

REPORT INFORMATION
  Report Type: Spontaneous
  Country: US (occurrence: US)
  Receive Date: 20170731
  Receipt Date: 20171204
  Transmission Date: 20180320
  Serious: No
  Sender: FDA-Public Use
  Company Number: US-ACTELION-A-NJ2017-152363

PATIENT
  Age: 49 Year
  Sex: Male

DRUGS (13)
  1. MULTIVITAMINS W/MINERALS [Concomitant]
     Active Substance: MINERALS\VITAMINS
  2. DIGOXIN. [Concomitant]
     Active Substance: DIGOXIN
  3. SPIRONOLACTONE. [Concomitant]
     Active Substance: SPIRONOLACTONE
  4. ADCIRCA [Suspect]
     Active Substance: TADALAFIL
     Indication: PULMONARY ARTERIAL HYPERTENSION
     Dosage: 40 MG, QD
     Route: 065
     Dates: start: 20160711
  5. SILDENAFIL. [Concomitant]
     Active Substance: SILDENAFIL
  6. MAGNESIUM [Concomitant]
     Active Substance: MAGNESIUM
  7. POTASSIUM [Concomitant]
     Active Substance: POTASSIUM
  8. FUROSEMIDE. [Concomitant]
     Active Substance: FUROSEMIDE
  9. OPSUMIT [Suspect]
     Active Substance: MACITENTAN
     Indication: PULMONARY ARTERIAL HYPERTENSION
     Dosage: 10 MG, QD
     Route: 048
     Dates: start: 20151112
  10. LASIX [Concomitant]
     Active Substance: FUROSEMIDE
  11. ZOLPIDEM [Concomitant]
     Active Substance: ZOLPIDEM\ZOLPIDEM TARTRATE
  12. PRAVASTATIN. [Concomitant]
     Active Substance: PRAVASTATIN
  13. DIGITEK [Concomitant]
     Active Substance: DIGOXIN

REACTIONS (6)
  - Swelling [Recovering/Resolving]
  - Chest pain [Not Recovered/Not Resolved]
  - Catheter site haemorrhage [Unknown]
  - Erythema [Recovering/Resolving]
  - Chest discomfort [Not Recovered/Not Resolved]
  - Hot flush [Recovering/Resolving]

NARRATIVE: CASE EVENT DATE: 20161106
